FAERS Safety Report 7490543-9 (Version None)
Quarter: 2011Q2

REPORT INFORMATION
  Report Type: 
  Country: None (occurrence: None)
  Receive Date: 20110519
  Receipt Date: 20110506
  Transmission Date: 20111010
  Serious: Yes (Hospitalization, Other)
  Sender: FDA-Public Use
  Company Number: FR-PFIZER INC-2011106581

PATIENT
  Age: 39 Year
  Sex: Female

DRUGS (1)
  1. ATARAX [Suspect]
     Dosage: 25 MG, UNK
     Route: 048

REACTIONS (1)
  - ANGIOEDEMA [None]
